FAERS Safety Report 9281148 (Version 2)
Quarter: 2013Q2

REPORT INFORMATION
  Report Type: Report from Study
  Country: CA (occurrence: CA)
  Receive Date: 20130509
  Receipt Date: 20130523
  Transmission Date: 20140414
  Serious: Yes (Hospitalization)
  Sender: FDA-Public Use
  Company Number: PHHY2013CA018432

PATIENT
  Age: 93 Year
  Sex: Male

DRUGS (1)
  1. ZOMETA [Suspect]
     Indication: PROSTATE CANCER
     Dosage: 3.5 MG, EVERY 4 WEEKS
     Route: 042
     Dates: start: 20130118

REACTIONS (6)
  - Fall [Unknown]
  - Body temperature decreased [Unknown]
  - Heart rate irregular [Unknown]
  - Fatigue [Unknown]
  - Arthralgia [Unknown]
  - Oedema peripheral [Not Recovered/Not Resolved]
